FAERS Safety Report 12679449 (Version 1)
Quarter: 2016Q3

REPORT INFORMATION
  Report Type: Spontaneous
  Country: DE (occurrence: DE)
  Receive Date: 20160824
  Receipt Date: 20160824
  Transmission Date: 20161109
  Serious: Yes (Hospitalization, Other)
  Sender: FDA-Public Use
  Company Number: DE-AMGEN-DEUSP2016108774

PATIENT
  Sex: Male

DRUGS (9)
  1. ACICLOVIR [Concomitant]
     Active Substance: ACYCLOVIR
     Indication: PROPHYLAXIS
     Dosage: 400 MG, QD (1 TIME A DAY)
     Route: 048
     Dates: start: 20160222
  2. RITUXIMAB [Suspect]
     Active Substance: RITUXIMAB
     Indication: B-CELL LYMPHOMA
     Dosage: 678.75 MG, UNK (1 TIME A DAY FOR 1 DAY)
     Route: 042
     Dates: start: 20160307, end: 20160307
  3. PREDNISOLONE. [Suspect]
     Active Substance: PREDNISOLONE
     Indication: B-CELL LYMPHOMA
     Dosage: 100 MG, QD (1 TIMES A DAY FOR 5 DAYS)
     Route: 048
     Dates: start: 20160307, end: 20160311
  4. SULFAMETHOXAZOL W/TRIMETOPRIM [Concomitant]
     Active Substance: SULFAMETHOXAZOLE\TRIMETHOPRIM
     Indication: PROPHYLAXIS
     Dosage: 960 MG, 2 TIMES/WK (1-0-1, 2X/W)
     Route: 048
     Dates: start: 20160222
  5. CIPROFLOXACIN. [Concomitant]
     Active Substance: CIPROFLOXACIN
     Indication: PROPHYLAXIS
     Dosage: 500 MG, BID (2 TIMES A DAY)
     Route: 048
     Dates: start: 20160312
  6. DOXORUBICINE [Suspect]
     Active Substance: DOXORUBICIN
     Indication: B-CELL LYMPHOMA
     Dosage: 90.5 MG, UNK (1 TIME A DAY FOR 1 DAY)
     Route: 042
     Dates: start: 20160308, end: 20160308
  7. PEGFILGRASTIM [Suspect]
     Active Substance: PEGFILGRASTIM
     Indication: B-CELL LYMPHOMA
     Dosage: 6 MG, UNK (1 TIME A DAY FOR 1 DAY)
     Route: 058
     Dates: start: 20160310, end: 20160310
  8. VINCRISTINE [Suspect]
     Active Substance: VINCRISTINE
     Indication: B-CELL LYMPHOMA
     Dosage: 3.92 MG, UNK (1 TIME A DAY FOR 1 DAY)
     Route: 042
     Dates: start: 20160303, end: 20160308
  9. CYCLOPHOSPHAMIDE. [Suspect]
     Active Substance: CYCLOPHOSPHAMIDE
     Indication: B-CELL LYMPHOMA
     Dosage: 1357.5 MG, UNK (1 TIME A DAY FOR 1 DAY)
     Route: 042
     Dates: start: 20160308, end: 20160308

REACTIONS (2)
  - Vascular dementia [Recovered/Resolved]
  - Organic brain syndrome [Recovered/Resolved]

NARRATIVE: CASE EVENT DATE: 20160315
